FAERS Safety Report 23148784 (Version 1)
Quarter: 2023Q4

REPORT INFORMATION
  Report Type: Spontaneous
  Country: US (occurrence: None)
  Receive Date: 20231103
  Receipt Date: 20231103
  Transmission Date: 20240110
  Serious: Yes (Life-Threatening, Hospitalization, Other)
  Sender: FDA-Public Use
  Company Number: None

PATIENT
  Age: 52 Year
  Sex: Male
  Weight: 78.75 kg

DRUGS (14)
  1. PAXLOVID [Suspect]
     Active Substance: NIRMATRELVIR\RITONAVIR
     Indication: COVID-19
     Route: 048
     Dates: start: 20220626, end: 20220630
  2. Post Paxlovid [Concomitant]
  3. Ultomiris 1200 ml [Concomitant]
  4. Coreg 6.25mg [Concomitant]
  5. Hyrazaline 50mg [Concomitant]
  6. Clonidine .1 mg [Concomitant]
  7. Penicillin VK 500mg [Concomitant]
  8. Foley Catheter [Concomitant]
  9. Pre Paxlovid: Rapaflo [Concomitant]
  10. Dilatizem [Concomitant]
  11. vitamin D [Concomitant]
  12. ecinachea [Concomitant]
  13. Multi-vitamin [Concomitant]
  14. PROBIOTICS NOS [Concomitant]
     Active Substance: PROBIOTICS NOS

REACTIONS (14)
  - Rash [None]
  - Thirst [None]
  - Diarrhoea [None]
  - Taste disorder [None]
  - Chromaturia [None]
  - Yellow skin [None]
  - Rebound effect [None]
  - Loss of personal independence in daily activities [None]
  - Renal failure [None]
  - Vital functions abnormal [None]
  - Dialysis [None]
  - Atypical haemolytic uraemic syndrome [None]
  - Bladder disorder [None]
  - Atypical haemolytic uraemic syndrome [None]

NARRATIVE: CASE EVENT DATE: 20220709
